FAERS Safety Report 20038357 (Version 1)
Quarter: 2021Q4

REPORT INFORMATION
  Report Type: Report from Study
  Country: US (occurrence: None)
  Receive Date: 20211105
  Receipt Date: 20211105
  Transmission Date: 20220303
  Serious: Yes (Hospitalization)
  Sender: FDA-Public Use
  Company Number: US-ROCHE-2870263

PATIENT
  Age: 57 Year
  Sex: Male
  Weight: 98.064 kg

DRUGS (2)
  1. RITUXIMAB [Suspect]
     Active Substance: RITUXIMAB
     Indication: Follicular lymphoma
     Dosage: DAY 8 IN CYCLE 1; LAST DOSE OF RITUXIMAB WAS RECEIVED ON 15/OCT/2019
     Route: 041
     Dates: start: 20180101
  2. AVADOMIDE [Suspect]
     Active Substance: AVADOMIDE
     Indication: Follicular lymphoma
     Dosage: LAST DOSE ADMINISTERED: 09/JUL/2021
     Route: 048
     Dates: start: 20210628

REACTIONS (2)
  - Rhinitis [Recovered/Resolved]
  - Cough [Unknown]

NARRATIVE: CASE EVENT DATE: 20210709
